FAERS Safety Report 8605475 (Version 3)
Quarter: 2016Q3

REPORT INFORMATION
  Report Type: Spontaneous
  Country: JP (occurrence: JP)
  Receive Date: 20120608
  Receipt Date: 20160826
  Transmission Date: 20161109
  Serious: Yes (Hospitalization, Other)
  Sender: FDA-Public Use
  Company Number: JP-GLAXOSMITHKLINE-B0800902A

PATIENT
  Age: 45 Year
  Sex: Female

DRUGS (3)
  1. LAMOTRIGINE. [Suspect]
     Active Substance: LAMOTRIGINE
     Indication: BIPOLAR DISORDER
     Dosage: 25 MG, QD
     Route: 048
     Dates: start: 20120421, end: 20120426
  2. LAMOTRIGINE. [Suspect]
     Active Substance: LAMOTRIGINE
     Route: 048
     Dates: start: 20120427, end: 20120505
  3. TRIAZOLAM. [Suspect]
     Active Substance: TRIAZOLAM
     Dosage: 0.125 MG, QD
     Route: 048
     Dates: start: 20120328, end: 20120505

REACTIONS (16)
  - Conjunctival hyperaemia [Unknown]
  - Erythema [Unknown]
  - Pyrexia [Unknown]
  - Erythema multiforme [Unknown]
  - White blood cell count increased [Unknown]
  - Eyelid oedema [Unknown]
  - Lip erosion [Unknown]
  - Dizziness [Unknown]
  - Stevens-Johnson syndrome [Recovering/Resolving]
  - Rash [Unknown]
  - Blister [Unknown]
  - Oral mucosa erosion [Unknown]
  - Papule [Unknown]
  - Lip swelling [Unknown]
  - Eye discharge [Unknown]
  - C-reactive protein increased [Unknown]

NARRATIVE: CASE EVENT DATE: 20120503
